FAERS Safety Report 24080287 (Version 1)
Quarter: 2024Q3

REPORT INFORMATION
  Report Type: Report from Study
  Country: DE (occurrence: DE)
  Receive Date: 20240711
  Receipt Date: 20240711
  Transmission Date: 20241016
  Serious: Yes (Other)
  Sender: ALNYLAM PHARMACEUTICALS
  Company Number: DE-ALNYLAM PHARMACEUTICALS, INC.-ALN-2024-003803

PATIENT

DRUGS (2)
  1. AMVUTTRA [Suspect]
     Active Substance: VUTRISIRAN
     Indication: Product used for unknown indication
     Dosage: UNK, Q3M
     Route: 065
  2. AMVUTTRA [Suspect]
     Active Substance: VUTRISIRAN
     Dosage: 25, Q3M
     Route: 065
     Dates: start: 20240407, end: 20240407

REACTIONS (6)
  - Rib fracture [Recovered/Resolved]
  - Contusion [Recovered/Resolved]
  - Oedema peripheral [Recovered/Resolved with Sequelae]
  - Cystitis [Recovered/Resolved with Sequelae]
  - Pulmonary oedema [Recovered/Resolved with Sequelae]
  - Fall [Unknown]

NARRATIVE: CASE EVENT DATE: 20240606
